FAERS Safety Report 7262579-4 (Version None)
Quarter: 2011Q1

REPORT INFORMATION
  Report Type: 
  Country: None (occurrence: None)
  Receive Date: 20110130
  Receipt Date: 20101130
  Transmission Date: 20110831
  Serious: No
  Sender: FDA-Public Use
  Company Number: US-ABBOTT-10P-163-0688474-00

PATIENT
  Sex: Female
  Weight: 65.83 kg

DRUGS (8)
  1. THYROID TAB [Concomitant]
     Indication: HYPOTHYROIDISM
  2. METHOTREXATE [Concomitant]
     Indication: PRODUCT USED FOR UNKNOWN INDICATION
  3. EFFEXOR [Concomitant]
     Indication: DEPRESSION
  4. LIALDA [Concomitant]
     Indication: COLITIS ULCERATIVE
  5. HUMIRA [Suspect]
     Indication: RHEUMATOID ARTHRITIS
     Dates: start: 20100101
  6. ATROVENT [Concomitant]
     Indication: ASTHMA
  7. ADVAIR [Concomitant]
     Indication: ASTHMA
  8. BONIVA [Concomitant]
     Indication: OSTEOPOROSIS

REACTIONS (2)
  - PAIN [None]
  - DRUG INEFFECTIVE [None]
